FAERS Safety Report 9929140 (Version 1)
Quarter: 2014Q1

REPORT INFORMATION
  Report Type: Report from Study
  Country: US (occurrence: US)
  Receive Date: 20140227
  Receipt Date: 20140227
  Transmission Date: 20141002
  Serious: Yes (Hospitalization)
  Sender: FDA-Public Use
  Company Number: US-JNJFOC-20140214813

PATIENT
  Age: 76 Year
  Sex: Female
  Weight: 73.03 kg

DRUGS (2)
  1. REMICADE [Suspect]
     Indication: RHEUMATOID ARTHRITIS
     Route: 042
     Dates: end: 201402
  2. PREDNISONE [Concomitant]
     Route: 065

REACTIONS (4)
  - Pulmonary oedema [Recovering/Resolving]
  - Tremor [Recovered/Resolved]
  - Weight decreased [Unknown]
  - Pain [Recovered/Resolved]
